FAERS Safety Report 5037496-0 (Version None)
Quarter: 2006Q2

REPORT INFORMATION
  Report Type: 
  Country: None (occurrence: None)
  Receive Date: 20060609
  Receipt Date: 20050921
  Transmission Date: 20061013
  Serious: Yes (Other)
  Sender: FDA-Public Use
  Company Number: 2005132016

PATIENT
  Age: 63 Year
  Sex: Female
  Weight: 54.4316 kg

DRUGS (3)
  1. ALDACTONE [Suspect]
     Indication: BLOOD PRESSURE INCREASED
     Dosage: 25 MG (25 MG, DAILY INTERVAL: EVERY DAY), ORAL
     Route: 048
     Dates: start: 20040401
  2. FLOVENT [Concomitant]
  3. FLONASE [Concomitant]

REACTIONS (1)
  - POSTMENOPAUSAL HAEMORRHAGE [None]
